FAERS Safety Report 25853445 (Version 1)
Quarter: 2025Q3

REPORT INFORMATION
  Report Type: Spontaneous
  Country: US (occurrence: US)
  Receive Date: 20250926
  Receipt Date: 20250926
  Transmission Date: 20251020
  Serious: No
  Sender: ABBVIE
  Company Number: US-ABBVIE-6468356

PATIENT
  Sex: Male

DRUGS (2)
  1. OZURDEX [Suspect]
     Active Substance: DEXAMETHASONE
     Indication: Retinal degeneration
     Route: 050
  2. OZURDEX [Suspect]
     Active Substance: DEXAMETHASONE
     Indication: Macular ischaemia

REACTIONS (5)
  - Ocular hyperaemia [Unknown]
  - Vision blurred [Unknown]
  - Eye pain [Not Recovered/Not Resolved]
  - Off label use [Unknown]
  - Eye haemorrhage [Recovered/Resolved]

NARRATIVE: CASE EVENT DATE: 20250101
